FAERS Safety Report 23231609 (Version 1)
Quarter: 2023Q4

REPORT INFORMATION
  Report Type: Spontaneous
  Country: US (occurrence: None)
  Receive Date: 20231127
  Receipt Date: 20231127
  Transmission Date: 20240110
  Serious: Yes (Other)
  Sender: FDA-Public Use
  Company Number: None

PATIENT
  Sex: Female

DRUGS (10)
  1. ACTEMRA ACTPEN [Suspect]
     Active Substance: TOCILIZUMAB
     Indication: Rheumatoid arthritis
     Dosage: OTHER QUANTITY : 162 MG/0.9ML ;?FREQUENCY : WEEKLY;?
     Route: 058
     Dates: start: 20221207
  2. ACTEMRA ACTPEN [Suspect]
     Active Substance: TOCILIZUMAB
     Dosage: FREQUENCY : WEEKLY;?
     Route: 058
  3. LAMOTRIGINE [Concomitant]
  4. LEVOTHYROXINE [Concomitant]
     Active Substance: LEVOTHYROXINE
  5. METOPROL SUC [Concomitant]
  6. PREDNISONE [Concomitant]
  7. QUETIAPINE [Concomitant]
  8. SEROQUEL XR [Concomitant]
     Active Substance: QUETIAPINE FUMARATE
  9. SERTRALINE [Concomitant]
  10. XELJANZ XR [Concomitant]
     Active Substance: TOFACITINIB CITRATE

REACTIONS (5)
  - Drug ineffective [None]
  - Loss of personal independence in daily activities [None]
  - Pain [None]
  - Surgery [None]
  - Intentional dose omission [None]
